FAERS Safety Report 4859443-4 (Version None)
Quarter: 2005Q4

REPORT INFORMATION
  Report Type: 
  Country: None (occurrence: None)
  Receive Date: 20051219
  Receipt Date: 20050728
  Transmission Date: 20060501
  Serious: Yes (Hospitalization)
  Sender: FDA-Public Use
  Company Number: HQWYE592829JUL05

PATIENT
  Sex: Female

DRUGS (5)
  1. ENBREL [Suspect]
     Indication: RHEUMATOID ARTHRITIS
     Route: 058
     Dates: start: 20050524
  2. AZATHIOPRINE [Concomitant]
  3. METHYLPREDNISOLONE [Concomitant]
  4. VOGLIBOSE [Concomitant]
  5. ATORVASTATIN [Concomitant]

REACTIONS (3)
  - MALAISE [None]
  - PYREXIA [None]
  - URINARY TRACT INFECTION [None]
